FAERS Safety Report 8746240 (Version 2)
Quarter: 2012Q4

REPORT INFORMATION
  Report Type: Report from Study
  Country: US (occurrence: US)
  Receive Date: 20120827
  Receipt Date: 20120905
  Transmission Date: 20130627
  Serious: No
  Sender: FDA-Public Use
  Company Number: US-JNJFOC-20120810653

PATIENT
  Age: 11 None
  Sex: Male
  Weight: 30.3 kg

DRUGS (5)
  1. REMICADE [Suspect]
     Indication: INFLAMMATORY BOWEL DISEASE
     Route: 042
     Dates: start: 20120327
  2. REMICADE [Suspect]
     Indication: INFLAMMATORY BOWEL DISEASE
     Route: 042
     Dates: start: 20120216
  3. CIPROFLOXACIN [Concomitant]
  4. MIRALAX [Concomitant]
  5. MULTIVITAMINS [Concomitant]

REACTIONS (1)
  - Cough [Recovered/Resolved]
